FAERS Safety Report 7602368-1 (Version None)
Quarter: 2011Q3

REPORT INFORMATION
  Report Type: 
  Country: None (occurrence: None)
  Receive Date: 20110712
  Receipt Date: 20110629
  Transmission Date: 20111222
  Serious: No
  Sender: FDA-Public Use
  Company Number: US-BIOGENIDEC-2011BI009903

PATIENT
  Sex: Female

DRUGS (2)
  1. TYSABRI [Suspect]
     Indication: MULTIPLE SCLEROSIS
     Route: 042
     Dates: start: 20110303
  2. DICLOFENAC SODIUM [Concomitant]
     Indication: FACIAL NEURALGIA

REACTIONS (4)
  - HYPERAESTHESIA [None]
  - HEADACHE [None]
  - ARTHRALGIA [None]
  - FACIAL NEURALGIA [None]
